FAERS Safety Report 10285833 (Version 2)
Quarter: 2014Q3

REPORT INFORMATION
  Report Type: Spontaneous
  Country: GB (occurrence: None)
  Receive Date: 20140703
  Receipt Date: 20140715
  Transmission Date: 20150326
  Serious: Yes (Disabling, Other)
  Sender: FDA-Public Use
  Company Number: AUR-APL-2014-06751

PATIENT
  Age: 69 Year
  Sex: Male
  Weight: 91.6 kg

DRUGS (10)
  1. DIHYDROCODEINE (DIHYDROCODEINE) [Concomitant]
     Active Substance: DIHYDROCODEINE
  2. SITAGLIPTIN (SITAGLIPTIN) [Concomitant]
  3. OMEPRAZOLE (OMEPRAZOLE) [Concomitant]
     Active Substance: OMEPRAZOLE
  4. DICLOFENAC SODIUM (DICLOFENAC SODIUM) [Concomitant]
     Active Substance: DICLOFENAC SODIUM
  5. SIMVASTATIN (SIMVASTATIN) UNKNOWN, UNKNOWN [Suspect]
     Active Substance: SIMVASTATIN
     Indication: PRODUCT USED FOR UNKNOWN INDICATION
     Route: 048
     Dates: start: 20060925, end: 20080514
  6. CLOPIDOGREL [Concomitant]
     Active Substance: CLOPIDOGREL BISULFATE
  7. QUININE BISULPHATE (QUININE BISULFATE) [Concomitant]
  8. ATORVASTATIN (ATORVASTATIN) [Suspect]
     Active Substance: ATORVASTATIN
     Indication: PRODUCT USED FOR UNKNOWN INDICATION
     Route: 048
     Dates: start: 20050222, end: 20060924
  9. BISACODYL (BISACODYL) [Concomitant]
     Active Substance: BISACODYL
  10. METFORMIN [Concomitant]
     Active Substance: METFORMIN HYDROCHLORIDE

REACTIONS (6)
  - Myalgia [None]
  - Muscular weakness [None]
  - Mobility decreased [None]
  - Activities of daily living impaired [None]
  - Myopathy [None]
  - Balance disorder [None]

NARRATIVE: CASE EVENT DATE: 201206
